FAERS Safety Report 10710443 (Version 2)
Quarter: 2015Q1

REPORT INFORMATION
  Report Type: Spontaneous
  Country: DK (occurrence: DK)
  Receive Date: 20150114
  Receipt Date: 20150205
  Transmission Date: 20150721
  Serious: Yes (Hospitalization, Disabling)
  Sender: FDA-Public Use
  Company Number: DK-SA-2014SA177559

PATIENT
  Age: 59 Year
  Sex: Female

DRUGS (4)
  1. MYCOSTATIN [Concomitant]
     Active Substance: NYSTATIN
     Indication: ORAL DISCOMFORT
     Dosage: DOSE: 100 IE/ML
     Route: 048
     Dates: start: 2013
  2. TAXOTERE [Suspect]
     Active Substance: DOCETAXEL
     Indication: BREAST CANCER
     Route: 065
     Dates: start: 20130108
  3. LETROZOLE. [Concomitant]
     Active Substance: LETROZOLE
     Indication: INVASIVE LOBULAR BREAST CARCINOMA
     Route: 048
  4. FLUCONAZOLE. [Concomitant]
     Active Substance: FLUCONAZOLE
     Indication: ORAL DISCOMFORT
     Dates: start: 2013

REACTIONS (15)
  - Disturbance in attention [Not Recovered/Not Resolved]
  - Oral mucosal exfoliation [Unknown]
  - Oral discomfort [Unknown]
  - Malaise [Unknown]
  - Peripheral swelling [Unknown]
  - Musculoskeletal stiffness [Not Recovered/Not Resolved]
  - Mood swings [Not Recovered/Not Resolved]
  - Stevens-Johnson syndrome [Not Recovered/Not Resolved]
  - Insomnia [Not Recovered/Not Resolved]
  - Pain [Not Recovered/Not Resolved]
  - Oral mucosal blistering [Unknown]
  - Skin exfoliation [Unknown]
  - Sensory disturbance [Not Recovered/Not Resolved]
  - Restlessness [Not Recovered/Not Resolved]
  - Fatigue [Not Recovered/Not Resolved]

NARRATIVE: CASE EVENT DATE: 2013
